FAERS Safety Report 7099761-5 (Version None)
Quarter: 2010Q4

REPORT INFORMATION
  Report Type: 
  Country: None (occurrence: None)
  Receive Date: 20101104
  Receipt Date: 20101025
  Transmission Date: 20110411
  Serious: Yes (Death, Life-Threatening, Hospitalization, Other)
  Sender: FDA-Public Use
  Company Number: 2009AC000374

PATIENT
  Age: 54 Year
  Sex: Female

DRUGS (62)
  1. DIGOXIN [Suspect]
     Dosage: 0.25 MG;PO
     Route: 048
     Dates: start: 20080128, end: 20080426
  2. DIGOXIN [Suspect]
     Dosage: .10 MG;QD;PO
     Route: 048
     Dates: start: 20031107, end: 20040101
  3. DIGOXIN [Suspect]
     Dosage: 0.20 MG;QD;PO
     Route: 048
     Dates: start: 20040101, end: 20080127
  4. DIGOXIN [Suspect]
     Indication: SUPRAVENTRICULAR TACHYCARDIA
     Dosage: .20 MG;QD;PO
     Route: 048
     Dates: start: 19951201, end: 20031106
  5. MOL-ITRON [Concomitant]
  6. THERAGRAN M [Concomitant]
  7. TYLOX [Concomitant]
  8. TYLENOL W/ CODEINE NO. 3 [Concomitant]
  9. LASIX [Concomitant]
  10. LISINOPRIL [Concomitant]
  11. CRESTOR [Concomitant]
  12. ASPIRIN [Concomitant]
  13. POTASSIUM CHLORIDE [Concomitant]
  14. PRILOSEC [Concomitant]
  15. PROPECIA [Concomitant]
  16. MULTI-VITAMIN [Concomitant]
  17. CALCIUM [Concomitant]
  18. ASCORBIC ACID [Concomitant]
  19. VITAMIN D [Concomitant]
  20. GARLIC [Concomitant]
  21. FISH OIL [Concomitant]
  22. FOLIC ACID [Concomitant]
  23. COUMADIN [Concomitant]
  24. POTASSIUM CHLORIDE [Concomitant]
  25. LANOXICAPS [Concomitant]
  26. COUMADIN [Concomitant]
  27. ADMACORT [Concomitant]
  28. SLO-BID [Concomitant]
  29. MICRO-K [Concomitant]
  30. ZESTRIL [Concomitant]
  31. PERCOCET [Concomitant]
  32. PREMARIN [Concomitant]
  33. RELAFEN [Concomitant]
  34. SELDANE [Concomitant]
  35. TAGAMET [Concomitant]
  36. ELAVIL [Concomitant]
  37. LIPITOR [Concomitant]
  38. MACRODANTIN [Concomitant]
  39. KENALOG [Concomitant]
  40. *MDI [Concomitant]
  41. K-DUR [Concomitant]
  42. VIOXX [Concomitant]
  43. CELEBREX [Concomitant]
  44. BENADRYL [Concomitant]
  45. VITAMIN E [Concomitant]
  46. ALLEGRA [Concomitant]
  47. VITAMIN E [Concomitant]
  48. ALLEGRA [Concomitant]
  49. VIT B6 [Concomitant]
  50. KEFLEX [Concomitant]
  51. PERCOCET [Concomitant]
  52. TORADOL [Concomitant]
  53. MORPHINE [Concomitant]
  54. OXYCONTIN [Concomitant]
  55. METOPROLOL [Concomitant]
  56. PREDNISONE [Concomitant]
  57. DILAUDID [Concomitant]
  58. DEMEROL [Concomitant]
  59. PHENERGAN [Concomitant]
  60. FLEXERIL [Concomitant]
  61. PEPTO-BISMOL [Concomitant]
  62. OXYGEN [Concomitant]

REACTIONS (23)
  - ABDOMINAL PAIN UPPER [None]
  - AORTIC VALVE INCOMPETENCE [None]
  - ASTHMA [None]
  - ATRIAL TACHYCARDIA [None]
  - BUNDLE BRANCH BLOCK LEFT [None]
  - CAROTID ARTERY STENOSIS [None]
  - CEREBROVASCULAR ACCIDENT [None]
  - DIARRHOEA [None]
  - DRUG HYPERSENSITIVITY [None]
  - HIATUS HERNIA [None]
  - INTERNATIONAL NORMALISED RATIO INCREASED [None]
  - ISCHAEMIC CARDIOMYOPATHY [None]
  - LEFT VENTRICULAR HYPERTROPHY [None]
  - MITRAL VALVE INCOMPETENCE [None]
  - OESOPHAGEAL STENOSIS [None]
  - ROTATOR CUFF REPAIR [None]
  - SHOULDER OPERATION [None]
  - SINUSITIS [None]
  - SUDDEN CARDIAC DEATH [None]
  - THERAPEUTIC AGENT TOXICITY [None]
  - TRANSIENT ISCHAEMIC ATTACK [None]
  - TRICUSPID VALVE INCOMPETENCE [None]
  - URINARY TRACT INFECTION [None]
